FAERS Safety Report 7814353-5 (Version None)
Quarter: 2011Q4

REPORT INFORMATION
  Report Type: 
  Country: None (occurrence: None)
  Receive Date: 20111011
  Receipt Date: 20111003
  Transmission Date: 20120403
  Serious: Yes (Hospitalization, Other)
  Sender: FDA-Public Use
  Company Number: 2009-199669-NL

PATIENT
  Age: 43 Year
  Sex: Female
  Weight: 99.7913 kg

DRUGS (3)
  1. LEXAPRO [Concomitant]
  2. PROPRANOLOL [Concomitant]
  3. NUVARING [Suspect]
     Indication: CONTRACEPTION
     Dosage: 1 DF;
     Dates: start: 20050831, end: 20070701

REACTIONS (34)
  - FATIGUE [None]
  - PULMONARY HYPERTENSION [None]
  - PALPITATIONS [None]
  - SYNCOPE [None]
  - ASTHENIA [None]
  - STRESS FRACTURE [None]
  - FOOT FRACTURE [None]
  - DEEP VEIN THROMBOSIS [None]
  - VENOUS OCCLUSION [None]
  - DISEASE PROGRESSION [None]
  - CYSTOCELE [None]
  - FINGER DEFORMITY [None]
  - FALL [None]
  - HEART RATE DECREASED [None]
  - DYSPHAGIA [None]
  - LIGAMENT SPRAIN [None]
  - THROMBOPHLEBITIS SUPERFICIAL [None]
  - VENTRICULAR EXTRASYSTOLES [None]
  - DEPRESSION [None]
  - JOINT SWELLING [None]
  - PULMONARY EMBOLISM [None]
  - UNEVALUABLE EVENT [None]
  - COMPLEX REGIONAL PAIN SYNDROME [None]
  - ATAXIA [None]
  - TRIGGER FINGER [None]
  - SCAR [None]
  - PRESYNCOPE [None]
  - ORTHOSTATIC HYPERTENSION [None]
  - URINARY RETENTION [None]
  - VISION BLURRED [None]
  - IMPAIRED WORK ABILITY [None]
  - REFUSAL OF TREATMENT BY PATIENT [None]
  - TUNNEL VISION [None]
  - SENSORY LOSS [None]
